FAERS Safety Report 4362877-8 (Version None)
Quarter: 2004Q2

REPORT INFORMATION
  Report Type: 
  Country: None (occurrence: None)
  Receive Date: 20040517
  Receipt Date: 20040331
  Transmission Date: 20050107
  Serious: No
  Sender: FDA-Public Use
  Company Number: S04-USA-01850-01

PATIENT
  Age: 76 Year
  Sex: Female

DRUGS (11)
  1. NAMENDA [Suspect]
     Indication: DEMENTIA ALZHEIMER'S TYPE
     Dosage: 5 M G QD PO
     Route: 048
     Dates: start: 20040301, end: 20040301
  2. NAMENDA [Suspect]
     Indication: DEMENTIA ALZHEIMER'S TYPE
     Dosage: 5 MG BID PO
     Route: 048
     Dates: start: 20040301, end: 20040301
  3. NAMENDA [Suspect]
     Indication: DEMENTIA ALZHEIMER'S TYPE
     Dosage: 10 MG QAM PO
     Route: 048
     Dates: start: 20040301
  4. NAMENDA [Suspect]
     Indication: DEMENTIA ALZHEIMER'S TYPE
     Dosage: 5 MG QHS PO
     Route: 048
     Dates: start: 20040301
  5. ARICEPT [Concomitant]
  6. ISOSORBIDE [Concomitant]
  7. PLAVIIX (CLOPIDOGREL SULFATE) [Concomitant]
  8. ALBUTEROL [Concomitant]
  9. BUDESONIDE [Concomitant]
  10. IPRATROPIUM BROMIDE [Concomitant]
  11. FOSAMAX [Concomitant]

REACTIONS (3)
  - COUGH [None]
  - DRY THROAT [None]
  - JOINT SWELLING [None]
